FAERS Safety Report 6950339-0 (Version None)
Quarter: 2010Q3

REPORT INFORMATION
  Report Type: 
  Country: None (occurrence: None)
  Receive Date: 20100828
  Receipt Date: 20100203
  Transmission Date: 20110219
  Serious: No
  Sender: FDA-Public Use
  Company Number: US-ABBOTT-10P-163-0624405-00

PATIENT
  Sex: Male
  Weight: 102.15 kg

DRUGS (9)
  1. NIASPAN [Suspect]
     Indication: BLOOD CHOLESTEROL INCREASED
     Route: 048
     Dates: start: 20090101, end: 20090201
  2. NIASPAN [Suspect]
     Route: 048
     Dates: start: 20090201, end: 20091101
  3. NIASPAN [Suspect]
     Route: 048
     Dates: start: 20091101, end: 20091201
  4. NIASPAN [Suspect]
     Route: 048
     Dates: start: 20091201, end: 20100121
  5. NIASPAN [Suspect]
     Route: 048
     Dates: start: 20100125, end: 20100127
  6. TRICOR [Concomitant]
     Indication: BLOOD CHOLESTEROL INCREASED
     Dosage: DOSE UNKNOWN
  7. CRESTOR [Concomitant]
     Indication: BLOOD CHOLESTEROL INCREASED
     Dosage: DOSE UNKNOWN
  8. TOPROL-XL [Concomitant]
     Indication: HYPERTENSION
     Dosage: DOSE UNKNOWN
  9. ASPIRIN [Concomitant]
     Indication: PRODUCT USED FOR UNKNOWN INDICATION
     Dosage: ONCE EVERY MORNING

REACTIONS (2)
  - FLUSHING [None]
  - PRURITUS [None]
